FAERS Safety Report 7654673-0 (Version None)
Quarter: 2011Q3

REPORT INFORMATION
  Report Type: 
  Country: None (occurrence: None)
  Receive Date: 20110804
  Receipt Date: 20110726
  Transmission Date: 20111222
  Serious: Yes (Hospitalization)
  Sender: FDA-Public Use
  Company Number: US-BIOGENIDEC-2011BI025880

PATIENT
  Age: 29 Year
  Sex: Female
  Weight: 45 kg

DRUGS (16)
  1. TYSABRI [Suspect]
     Indication: CROHN'S DISEASE
     Route: 042
     Dates: start: 20110419
  2. PREDNISONE [Concomitant]
  3. LOPERAMIDE HCL [Concomitant]
     Route: 048
  4. METRONIDAZOLE [Concomitant]
     Route: 048
  5. CITALOPRAM HYDROBROMIDE [Concomitant]
     Route: 048
  6. NORTRIPTYLINE HCL [Concomitant]
     Route: 048
  7. ADVAIR DISKUS 100/50 [Concomitant]
     Route: 055
  8. ZOFRAN [Concomitant]
     Indication: NAUSEA
     Route: 048
  9. PERCOCET [Concomitant]
     Indication: PAIN
  10. LEVOTHYROXINE SODIUM [Concomitant]
     Route: 048
  11. PRILOSEC [Concomitant]
     Route: 048
  12. FOSAMAX [Concomitant]
     Route: 048
  13. VANCOMYCIN [Concomitant]
     Route: 048
  14. MAGNESIUM OXIDE [Concomitant]
     Route: 048
  15. VITAMIN D [Concomitant]
  16. CALCIUM CARBONATE [Concomitant]

REACTIONS (1)
  - NO ADVERSE EVENT [None]
